FAERS Safety Report 8153662-X (Version None)
Quarter: 2012Q1

REPORT INFORMATION
  Report Type: 
  Country: None (occurrence: None)
  Receive Date: 20120221
  Receipt Date: 20120216
  Transmission Date: 20120608
  Serious: Yes (Death)
  Sender: FDA-Public Use
  Company Number: US-CUBIST-2012S1000188

PATIENT
  Sex: Male

DRUGS (3)
  1. CUBICIN [Suspect]
     Indication: PRODUCT USED FOR UNKNOWN INDICATION
     Route: 065
     Dates: start: 20110101
  2. LINEZOLID [Suspect]
     Indication: PRODUCT USED FOR UNKNOWN INDICATION
  3. VANCOMYCIN [Suspect]
     Indication: PRODUCT USED FOR UNKNOWN INDICATION

REACTIONS (1)
  - EOSINOPHILIC PNEUMONIA [None]
